FAERS Safety Report 10989215 (Version 1)
Quarter: 2015Q2

REPORT INFORMATION
  Report Type: Spontaneous
  Country: US (occurrence: US)
  Receive Date: 20150406
  Receipt Date: 20150406
  Transmission Date: 20150821
  Serious: Yes (Other)
  Sender: FDA-Public Use
  Company Number: US-AUROBINDO-AUR-APL-2015-02874

PATIENT
  Age: 64 Year
  Sex: Female

DRUGS (2)
  1. PEGYLATED INTERFERON ALFA-2A [Suspect]
     Active Substance: PEGINTERFERON ALFA-2A
     Indication: HEPATITIS CHOLESTATIC
     Dosage: 135 MCG, UNK
     Route: 058
  2. RIBAVIRIN. [Suspect]
     Active Substance: RIBAVIRIN
     Indication: HEPATITIS CHOLESTATIC
     Dosage: UNK
     Route: 065

REACTIONS (4)
  - Acute kidney injury [Unknown]
  - Urate nephropathy [Unknown]
  - Hyperuricaemia [Recovered/Resolved]
  - Blood creatinine increased [Unknown]
